FAERS Safety Report 14632400 (Version 1)
Quarter: 2018Q1

REPORT INFORMATION
  Report Type: Spontaneous
  Country: CZ (occurrence: CZ)
  Receive Date: 20180313
  Receipt Date: 20180313
  Transmission Date: 20180509
  Serious: Yes (Hospitalization, Other)
  Sender: FDA-Public Use
  Company Number: US-ASTRAZENECA-2018SE31840

PATIENT
  Age: 10 Month
  Sex: Male

DRUGS (5)
  1. SYNAGIS [Suspect]
     Active Substance: PALIVIZUMAB
     Indication: IMMUNISATION
     Route: 030
     Dates: start: 20180116, end: 20180116
  2. SYNAGIS [Suspect]
     Active Substance: PALIVIZUMAB
     Indication: IMMUNISATION
     Route: 030
     Dates: start: 20180212, end: 20180212
  3. SYNAGIS [Suspect]
     Active Substance: PALIVIZUMAB
     Indication: IMMUNISATION
     Dosage: 1ST DOSE
     Route: 030
     Dates: start: 20171122, end: 20171122
  4. SYNAGIS [Suspect]
     Active Substance: PALIVIZUMAB
     Indication: IMMUNISATION
     Route: 030
  5. DEPAKINE [Concomitant]
     Active Substance: VALPROATE SODIUM
     Indication: PRODUCT USED FOR UNKNOWN INDICATION

REACTIONS (8)
  - Vomiting [Unknown]
  - Posthaemorrhagic hydrocephalus [Unknown]
  - CSF shunt operation [Unknown]
  - Partial seizures with secondary generalisation [Recovered/Resolved]
  - C-reactive protein increased [Unknown]
  - Meningitis staphylococcal [Unknown]
  - Seizure [Recovered/Resolved]
  - Somnolence [Recovered/Resolved]

NARRATIVE: CASE EVENT DATE: 20171124
